FAERS Safety Report 6821743-6 (Version None)
Quarter: 2010Q3

REPORT INFORMATION
  Report Type: 
  Country: None (occurrence: None)
  Receive Date: 20100702
  Receipt Date: 20100622
  Transmission Date: 20110219
  Serious: Yes (Death, Other)
  Sender: FDA-Public Use
  Company Number: MC201000188

PATIENT

DRUGS (1)
  1. ANGIOMAX [Suspect]

REACTIONS (6)
  - CARDIOGENIC SHOCK [None]
  - CEREBROVASCULAR ACCIDENT [None]
  - CORONARY REVASCULARISATION [None]
  - HAEMORRHAGE [None]
  - MYOCARDIAL INFARCTION [None]
  - THROMBOLYSIS [None]
